FAERS Safety Report 5427758-7 (Version None)
Quarter: 2007Q3

REPORT INFORMATION
  Report Type: 
  Country: None (occurrence: None)
  Receive Date: 20070828
  Receipt Date: 20070818
  Transmission Date: 20080115
  Serious: Yes (Hospitalization)
  Sender: FDA-Public Use
  Company Number: US-ELI_LILLY_AND_COMPANY-US200708003948

PATIENT
  Age: 58 Year
  Sex: Female

DRUGS (10)
  1. BYETTA [Suspect]
     Indication: TYPE 2 DIABETES MELLITUS
     Dosage: 5 UG, 2/D
     Route: 058
     Dates: start: 20060101, end: 20060101
  2. BYETTA [Suspect]
     Dosage: 10 UG, 2/D
     Route: 058
     Dates: start: 20060101, end: 20070509
  3. BYETTA [Suspect]
     Dosage: 5 UG, 2/D
     Route: 058
     Dates: start: 20070601
  4. ACTOS [Concomitant]
     Indication: DIABETES MELLITUS
     Dosage: UNK, DAILY (1/D)
  5. METFORMIN HCL [Concomitant]
     Indication: DIABETES MELLITUS
     Dosage: UNK, 2/D
     Route: 048
     Dates: end: 20070501
  6. METFORMIN HCL [Concomitant]
     Dosage: UNK, 2/D
     Dates: start: 20070501
  7. METFORMIN HCL [Concomitant]
     Dosage: UNK, 2/D
     Route: 048
     Dates: start: 20070801
  8. BENICAR [Concomitant]
     Indication: HYPERTENSION
     Dosage: UNK, UNKNOWN
     Dates: end: 20070501
  9. BENICAR [Concomitant]
     Dosage: UNK, UNKNOWN
     Dates: start: 20070101, end: 20070801
  10. BENICAR [Concomitant]
     Dosage: UNK, UNKNOWN
     Dates: start: 20070801

REACTIONS (6)
  - ANOREXIA [None]
  - ANXIETY [None]
  - BLOOD PRESSURE DECREASED [None]
  - MALAISE [None]
  - NAUSEA [None]
  - OSTEOARTHRITIS [None]
